FAERS Safety Report 4425471-6 (Version None)
Quarter: 2004Q3

REPORT INFORMATION
  Report Type: 
  Country: None (occurrence: None)
  Receive Date: 20040813
  Receipt Date: 20040805
  Transmission Date: 20050211
  Serious: Yes (Life-Threatening)
  Sender: FDA-Public Use
  Company Number: JP-ROCHE-377253

PATIENT
  Age: 70 Year
  Sex: Male

DRUGS (3)
  1. KYTRIL [Suspect]
     Indication: PROPHYLAXIS OF NAUSEA AND VOMITING
     Route: 042
  2. BRIPLATIN [Concomitant]
  3. SAXIZON [Concomitant]

REACTIONS (3)
  - ARRHYTHMIA [None]
  - CARDIOPLEGIA [None]
  - SHOCK [None]
